FAERS Safety Report 6160741-5 (Version None)
Quarter: 2009Q2

REPORT INFORMATION
  Report Type: 
  Country: None (occurrence: None)
  Receive Date: 20090420
  Receipt Date: 20090419
  Transmission Date: 20091009
  Serious: Yes (Other)
  Sender: FDA-Public Use
  Company Number: US-PFIZER INC-2009179978

PATIENT
  Sex: Female
  Weight: 65.76 kg

DRUGS (4)
  1. CHANTIX [Suspect]
     Indication: SMOKING CESSATION THERAPY
     Dates: start: 20080101
  2. SPIRIVA [Concomitant]
     Dosage: UNK
  3. PROAIR HFA [Concomitant]
     Dosage: UNK
  4. SIMVASTATIN [Concomitant]
     Dosage: UNK

REACTIONS (7)
  - DRUG INEFFECTIVE [None]
  - DYSGEUSIA [None]
  - INTERSTITIAL LUNG DISEASE [None]
  - MALAISE [None]
  - STRESS [None]
  - TOBACCO USER [None]
  - VOMITING [None]
